FAERS Safety Report 18905032 (Version 2)
Quarter: 2021Q1

REPORT INFORMATION
  Report Type: Spontaneous
  Country: DE (occurrence: DE)
  Receive Date: 20210217
  Receipt Date: 20210325
  Transmission Date: 20210420
  Serious: Yes (Hospitalization, Other)
  Sender: FDA-Public Use
  Company Number: DE-BAYER-2021-063621

PATIENT
  Age: 40 Year
  Sex: Female

DRUGS (1)
  1. MIRENA [Suspect]
     Active Substance: LEVONORGESTREL
     Dosage: 20 ?G PER DAY CONTINUOUSLY
     Route: 015
     Dates: start: 20151217, end: 202012

REACTIONS (8)
  - Reproductive tract procedural complication [Recovered/Resolved]
  - Intra-abdominal haemorrhage [Recovered/Resolved]
  - Genital injury [Recovered/Resolved]
  - Complication of device insertion [None]
  - Circulatory collapse [Recovered/Resolved]
  - Ovarian cyst ruptured [Recovered/Resolved]
  - Dyspareunia [None]
  - Procedural pain [Recovered/Resolved]

NARRATIVE: CASE EVENT DATE: 20151217
